FAERS Safety Report 16075464 (Version 2)
Quarter: 2019Q2

REPORT INFORMATION
  Report Type: Spontaneous
  Country: CA (occurrence: CA)
  Receive Date: 20190315
  Receipt Date: 20190410
  Transmission Date: 20190711
  Serious: Yes (Other)
  Sender: FDA-Public Use
  Company Number: CA-ASTELLAS-2019US009776

PATIENT
  Age: 55 Year
  Sex: Male

DRUGS (3)
  1. ADVAGRAF [Suspect]
     Active Substance: TACROLIMUS
     Indication: PROPHYLAXIS AGAINST TRANSPLANT REJECTION
     Route: 048
     Dates: start: 20130203
  2. LEFLUNOMIDE. [Concomitant]
     Active Substance: LEFLUNOMIDE
     Indication: RHEUMATOID ARTHRITIS
     Route: 065
  3. ADVAGRAF [Suspect]
     Active Substance: TACROLIMUS
     Route: 048

REACTIONS (2)
  - General physical health deterioration [Not Recovered/Not Resolved]
  - Spinal stenosis [Not Recovered/Not Resolved]

NARRATIVE: CASE EVENT DATE: 20130210
